FAERS Safety Report 9001869 (Version 5)
Quarter: 2013Q2

REPORT INFORMATION
  Report Type: Spontaneous
  Country: US (occurrence: US)
  Receive Date: 20130108
  Receipt Date: 20130429
  Transmission Date: 20140414
  Serious: Yes (Other)
  Sender: FDA-Public Use
  Company Number: US-009507513-1301USA001911

PATIENT
  Sex: Female
  Weight: 90.25 kg

DRUGS (9)
  1. NEXPLANON [Suspect]
     Indication: CONTRACEPTION
     Dosage: 1 DF, UNK
     Route: 059
     Dates: start: 20121129, end: 20130109
  2. DIFLUCAN [Concomitant]
     Dosage: 150 MG, UNK
     Route: 048
  3. CEFUROXIME AXETIL [Concomitant]
     Dosage: 500 MG, BID
     Route: 048
  4. VITAMINS (UNSPECIFIED) [Concomitant]
     Dosage: UNK
     Route: 048
  5. COLACE [Concomitant]
     Dosage: 100 MG, BID
     Route: 048
  6. KEFLEX [Concomitant]
     Dosage: 500 MG, QID
     Route: 048
  7. MACROBID (NITROFURANTOIN) [Concomitant]
     Dosage: 100 MG, BID
     Route: 048
  8. BACTRIM DS [Concomitant]
     Dosage: UNK, BID
     Route: 048
  9. PHENTERMINE [Concomitant]
     Dosage: 37.5 MG, QD
     Route: 048

REACTIONS (4)
  - Abortion spontaneous [Recovered/Resolved]
  - Unintended pregnancy [Recovered/Resolved]
  - Endometrial disorder [Unknown]
  - Device difficult to use [Recovered/Resolved]
